FAERS Safety Report 4311571-8 (Version None)
Quarter: 2004Q1

REPORT INFORMATION
  Report Type: 
  Country: None (occurrence: None)
  Receive Date: 20040303
  Receipt Date: 20040303
  Transmission Date: 20041129
  Serious: Yes (Hospitalization)
  Sender: FDA-Public Use
  Company Number: None

PATIENT
  Age: 62 Year
  Sex: Female

DRUGS (10)
  1. ZIPRASIDONE [Suspect]
     Dosage: 20 AND QD AND QHS ORAL
     Route: 048
  2. DIVALPROEX SODIUM [Suspect]
  3. ASPIRIN [Concomitant]
  4. BENZTROPINE MESYLATE [Concomitant]
  5. DIVALPROEX SODIUM [Concomitant]
  6. ROSGLITAZONE [Concomitant]
  7. VERAPAMIL [Concomitant]
  8. ZIPRASIDONE [Concomitant]
  9. DONEPEZIL [Concomitant]
  10. OXYBUTYNIN [Concomitant]

REACTIONS (7)
  - ABASIA [None]
  - CONFUSIONAL STATE [None]
  - DISORIENTATION [None]
  - DYSARTHRIA [None]
  - DYSKINESIA [None]
  - MENTAL STATUS CHANGES [None]
  - MOTOR DYSFUNCTION [None]
